FAERS Safety Report 10694045 (Version 1)
Quarter: 2015Q1

REPORT INFORMATION
  Report Type: Spontaneous
  Country: US (occurrence: US)
  Receive Date: 20150106
  Receipt Date: 20150106
  Transmission Date: 20150721
  Serious: Yes (Hospitalization)
  Sender: FDA-Public Use
  Company Number: US-ABBVIE-15K-163-1328953-00

PATIENT
  Age: 40 Year
  Sex: Female
  Weight: 61.29 kg

DRUGS (2)
  1. HUMIRA [Suspect]
     Active Substance: ADALIMUMAB
     Indication: RHEUMATOID ARTHRITIS
  2. HUMIRA [Suspect]
     Active Substance: ADALIMUMAB
     Indication: ANKYLOSING SPONDYLITIS
     Route: 058
     Dates: start: 201108, end: 201109

REACTIONS (20)
  - Amnesia [Not Recovered/Not Resolved]
  - Speech disorder [Not Recovered/Not Resolved]
  - Speech disorder [Recovered/Resolved]
  - Motor dysfunction [Recovered/Resolved]
  - Lethargy [Recovered/Resolved]
  - Coordination abnormal [Not Recovered/Not Resolved]
  - Coordination abnormal [Recovered/Resolved]
  - Lethargy [Not Recovered/Not Resolved]
  - Coordination abnormal [Recovered/Resolved]
  - Lethargy [Recovered/Resolved]
  - Muscle atrophy [Not Recovered/Not Resolved]
  - Amnesia [Recovered/Resolved]
  - Mobility decreased [Recovered/Resolved]
  - Motor dysfunction [Recovered/Resolved]
  - Mobility decreased [Not Recovered/Not Resolved]
  - Amnesia [Recovered/Resolved]
  - Mobility decreased [Recovered/Resolved]
  - Motor dysfunction [Not Recovered/Not Resolved]
  - Central nervous system lesion [Not Recovered/Not Resolved]
  - Speech disorder [Recovered/Resolved]

NARRATIVE: CASE EVENT DATE: 201108
